FAERS Safety Report 10802219 (Version 1)
Quarter: 2015Q1

REPORT INFORMATION
  Report Type: Spontaneous
  Country: US (occurrence: US)
  Receive Date: 20150217
  Receipt Date: 20150217
  Transmission Date: 20150721
  Serious: No
  Sender: FDA-Public Use
  Company Number: US-SA-2014SA171551

PATIENT
  Sex: Female

DRUGS (2)
  1. SKLICE [Suspect]
     Active Substance: IVERMECTIN
     Indication: LICE INFESTATION
     Route: 061
     Dates: start: 20141122, end: 20141122
  2. SKLICE [Suspect]
     Active Substance: IVERMECTIN
     Indication: LICE INFESTATION
     Route: 061
     Dates: start: 20141129, end: 20141129

REACTIONS (1)
  - Rash pruritic [Unknown]
